FAERS Safety Report 6619501 (Version 2)
Quarter: 2012Q4

REPORT INFORMATION
  Report Type: 
  Country: JP (occurrence: JP)
  Receive Date: 20080421
  Receipt Date: 20121119
  Transmission Date: 20130627
  Serious: Yes (Other)
  Sender: FDA-Public Use
  Company Number: JP-ROCHE-559554

PATIENT

DRUGS (1)
  1. INTERFERON ALFA-2A [Suspect]
     Indication: CHRONIC HEPATITIS C
     Dosage: DOSAGE REPORTED AS 6 TO 10 MU PER DAY FOR 2 WEEKS AND 3 TIMES PER WEEK FOR 22 WEEKS.
     Route: 065

REACTIONS (1)
  - Ventricular extrasystoles [Unknown]
